FAERS Safety Report 25034132 (Version 1)
Quarter: 2025Q1

REPORT INFORMATION
  Report Type: Spontaneous
  Country: CA (occurrence: CA)
  Receive Date: 20250304
  Receipt Date: 20250304
  Transmission Date: 20250409
  Serious: Yes (Other)
  Sender: Haleon PLC
  Company Number: CA-SANDOZ-SDZ2024CA049318

PATIENT
  Age: 69 Year
  Sex: Female

DRUGS (8)
  1. DICLOFENAC [Suspect]
     Active Substance: DICLOFENAC
     Indication: Pain
     Route: 065
  2. BACLOFEN [Suspect]
     Active Substance: BACLOFEN
     Indication: Product used for unknown indication
     Route: 065
  3. CAFFEINE [Suspect]
     Active Substance: CAFFEINE
     Indication: Product used for unknown indication
     Route: 065
  4. TRAZODONE [Suspect]
     Active Substance: TRAZODONE HYDROCHLORIDE
     Indication: Insomnia
     Route: 065
  5. FUROSEMIDE [Suspect]
     Active Substance: FUROSEMIDE
     Indication: Urinary retention
     Route: 065
  6. CETIRIZINE HYDROCHLORIDE [Suspect]
     Active Substance: CETIRIZINE HYDROCHLORIDE
     Indication: Product used for unknown indication
     Route: 065
  7. DIMENHYDRINATE [Suspect]
     Active Substance: DIMENHYDRINATE
     Indication: Product used for unknown indication
     Route: 065
  8. PANTOPRAZOLE SODIUM [Suspect]
     Active Substance: PANTOPRAZOLE SODIUM
     Indication: Prophylaxis against gastrointestinal ulcer
     Route: 065

REACTIONS (5)
  - Urinary retention [Unknown]
  - Blood magnesium decreased [Unknown]
  - Insomnia [Unknown]
  - Oedema [Unknown]
  - Cognitive disorder [Unknown]
